FAERS Safety Report 5607468-3 (Version None)
Quarter: 2008Q1

REPORT INFORMATION
  Report Type: 
  Country: None (occurrence: None)
  Receive Date: 20080130
  Receipt Date: 20080128
  Transmission Date: 20080703
  Serious: Yes (Death)
  Sender: FDA-Public Use
  Company Number: CA-ASTRAZENECA-2008UW01911

PATIENT
  Sex: Female

DRUGS (3)
  1. BUPIVACAINE [Suspect]
     Indication: LOCAL ANAESTHESIA
     Dosage: ONE INJECTION WAS IN THE MORNING AND THE OTHER LATER IN THE DAY AFTER A LATE LUNCH
     Dates: start: 20030720, end: 20030720
  2. LIDOCAINE [Suspect]
     Indication: LOCAL ANAESTHESIA
     Dosage: ONE INJECTION WAS IN THE MORNING AND THE OTHER LATER IN THE DAY AFTER A LATE LUNCH
     Dates: start: 20030720, end: 20030720
  3. ALCOHOL [Concomitant]

REACTIONS (2)
  - ACCIDENTAL OVERDOSE [None]
  - DRUG TOXICITY [None]
